FAERS Safety Report 4983655-2 (Version None)
Quarter: 2006Q2

REPORT INFORMATION
  Report Type: 
  Country: None (occurrence: None)
  Receive Date: 20060425
  Receipt Date: 20060425
  Transmission Date: 20061013
  Serious: Yes (Other)
  Sender: FDA-Public Use
  Company Number: None

PATIENT
  Age: 90 Year
  Sex: Male
  Weight: 70 kg

DRUGS (7)
  1. WARFARIN SODIUM [Suspect]
     Indication: ATRIAL FIBRILLATION
     Dosage: 7.5 MG DAILY PO
     Route: 048
  2. ASPIRIN [Suspect]
     Indication: CHEST PAIN
     Dosage: 81 MG DAILY PO
     Route: 048
     Dates: start: 20041224, end: 20050106
  3. CALCIUM CARBONATE [Concomitant]
  4. FERROUS SULFATE TAB [Concomitant]
  5. LASIX [Concomitant]
  6. METOPROLOL SUCCINATE [Concomitant]
  7. NIFEDIPINE [Concomitant]

REACTIONS (9)
  - ASTHENIA [None]
  - CHEST PAIN [None]
  - HAEMATOCRIT DECREASED [None]
  - HAEMOGLOBIN DECREASED [None]
  - HAEMOPTYSIS [None]
  - HAEMORRHAGE [None]
  - INTERNATIONAL NORMALISED RATIO INCREASED [None]
  - PNEUMONIA [None]
  - PROTHROMBIN TIME PROLONGED [None]
